FAERS Safety Report 7291158-8 (Version None)
Quarter: 2011Q1

REPORT INFORMATION
  Report Type: 
  Country: None (occurrence: None)
  Receive Date: 20110214
  Receipt Date: 20110209
  Transmission Date: 20110831
  Serious: Yes (Death, Life-Threatening, Hospitalization, Disabling)
  Sender: FDA-Public Use
  Company Number: US-MERCK-1102USA01194

PATIENT
  Age: 85 Year
  Sex: Male

DRUGS (5)
  1. LEXAPRO [Concomitant]
     Route: 065
  2. SINEMET CR [Suspect]
     Route: 048
     Dates: end: 20101231
  3. STATIN (UNSPECIFIED) [Concomitant]
     Route: 065
  4. SINEMET CR [Suspect]
     Indication: PARKINSON'S DISEASE
     Route: 048
     Dates: start: 20110105, end: 20110111
  5. EXELON [Concomitant]
     Route: 065

REACTIONS (3)
  - DYSPHAGIA [None]
  - DYSKINESIA [None]
  - DISEASE COMPLICATION [None]
